FAERS Safety Report 6580984-6 (Version None)
Quarter: 2010Q1

REPORT INFORMATION
  Report Type: 
  Country: None (occurrence: None)
  Receive Date: 20100215
  Receipt Date: 20100209
  Transmission Date: 20100710
  Serious: Yes (Hospitalization)
  Sender: FDA-Public Use
  Company Number: FR-BRISTOL-MYERS SQUIBB COMPANY-14972087

PATIENT
  Sex: Female

DRUGS (2)
  1. ABILIFY [Suspect]
  2. RISPERDAL CONSTA [Suspect]

REACTIONS (1)
  - DISINHIBITION [None]
